FAERS Safety Report 5526695-7 (Version None)
Quarter: 2007Q4

REPORT INFORMATION
  Report Type: 
  Country: None (occurrence: None)
  Receive Date: 20071120
  Receipt Date: 20061204
  Transmission Date: 20080405
  Serious: Yes (Life-Threatening, Hospitalization, Other)
  Sender: FDA-Public Use
  Company Number: 2006150877

PATIENT
  Age: 63 Year
  Sex: Male
  Weight: 95.2554 kg

DRUGS (6)
  1. TIKOSYN [Suspect]
     Indication: ATRIAL FIBRILLATION
     Dosage: 1000 MCG (500 MCG,2 IN 1 D),ORAL
     Route: 048
     Dates: start: 20061124, end: 20061128
  2. ANAESTHETICS (ANAESTHETICS) [Suspect]
     Indication: CARDIOVERSION
     Dates: start: 20061128, end: 20061128
  3. VERAPAMIL [Concomitant]
  4. METOPROLOL TARTRATE [Concomitant]
  5. WARFARIN SODIUM [Concomitant]
  6. SIMVASTATIN [Concomitant]

REACTIONS (5)
  - ARRHYTHMIA [None]
  - ATRIAL FIBRILLATION [None]
  - BRADYCARDIA [None]
  - ELECTROCARDIOGRAM QT PROLONGED [None]
  - VENTRICULAR TACHYCARDIA [None]
